FAERS Safety Report 23709476 (Version 1)
Quarter: 2024Q2

REPORT INFORMATION
  Report Type: Spontaneous
  Country: GB (occurrence: GB)
  Receive Date: 20240404
  Receipt Date: 20240404
  Transmission Date: 20240716
  Serious: Yes (Disabling)
  Sender: FDA-Public Use
  Company Number: None

PATIENT
  Age: 66 Year
  Sex: Male
  Weight: 88 kg

DRUGS (3)
  1. DABIGATRAN [Suspect]
     Active Substance: DABIGATRAN
     Indication: Adverse drug reaction
     Dates: start: 20240314, end: 202404
  2. ATORVASTATIN [Concomitant]
     Active Substance: ATORVASTATIN
     Indication: Adverse drug reaction
     Dates: start: 202402
  3. PENICILLIN V [Concomitant]
     Active Substance: PENICILLIN V
     Indication: Acquired asplenia
     Dates: start: 2008

REACTIONS (4)
  - Pyrexia [Recovering/Resolving]
  - Pain [Recovering/Resolving]
  - Eye pain [Recovered/Resolved]
  - Fatigue [Recovering/Resolving]

NARRATIVE: CASE EVENT DATE: 20240314
